FAERS Safety Report 21980776 (Version 10)
Quarter: 2025Q1

REPORT INFORMATION
  Report Type: Report from Study
  Country: US (occurrence: US)
  Receive Date: 20230211
  Receipt Date: 20250101
  Transmission Date: 20250409
  Serious: No
  Sender: TAKEDA
  Company Number: US-TAKEDA-2022TUS012540

PATIENT
  Age: 48 Year
  Sex: Female
  Weight: 92 kg

DRUGS (45)
  1. HUMAN IMMUNOGLOBULIN G [Suspect]
     Active Substance: HUMAN IMMUNOGLOBULIN G
     Indication: Immunodeficiency common variable
     Dosage: 35 GRAM, Q4WEEKS
     Dates: start: 20190416
  2. HUMAN IMMUNOGLOBULIN G [Suspect]
     Active Substance: HUMAN IMMUNOGLOBULIN G
     Dosage: 30 GRAM, Q4WEEKS
  3. HUMAN IMMUNOGLOBULIN G [Suspect]
     Active Substance: HUMAN IMMUNOGLOBULIN G
     Dosage: UNK UNK, Q4WEEKS
  4. DIPHENHYDRAMINE [Concomitant]
     Active Substance: DIPHENHYDRAMINE
  5. HEPARIN [Concomitant]
     Active Substance: HEPARIN SODIUM
  6. EPINEPHRINE [Concomitant]
     Active Substance: EPINEPHRINE
  7. SODIUM CHLORIDE [Concomitant]
     Active Substance: SODIUM CHLORIDE
  8. HYDROXYCHLOROQUINE SULFATE [Concomitant]
     Active Substance: HYDROXYCHLOROQUINE SULFATE
  9. BUTRANS [Concomitant]
     Active Substance: BUPRENORPHINE
  10. NUCYNTA [Concomitant]
     Active Substance: TAPENTADOL HYDROCHLORIDE
  11. VICTOZA [Concomitant]
     Active Substance: LIRAGLUTIDE
  12. OMEPRAZOLE [Concomitant]
     Active Substance: OMEPRAZOLE
  13. HYDROXYZINE HYDROCHLORIDE [Concomitant]
     Active Substance: HYDROXYZINE HYDROCHLORIDE
  14. MOTEGRITY [Concomitant]
     Active Substance: PRUCALOPRIDE SUCCINATE
  15. ACETAMINOPHEN [Concomitant]
     Active Substance: ACETAMINOPHEN
  16. CETIRIZINE HYDROCHLORIDE [Concomitant]
     Active Substance: CETIRIZINE HYDROCHLORIDE
  17. OXYGEN [Concomitant]
     Active Substance: OXYGEN
  18. URSODIOL [Concomitant]
     Active Substance: URSODIOL
  19. TRINTELLIX [Concomitant]
     Active Substance: VORTIOXETINE HYDROBROMIDE
  20. CARVEDILOL [Concomitant]
     Active Substance: CARVEDILOL
  21. BENLYSTA [Concomitant]
     Active Substance: BELIMUMAB
  22. GABAPENTIN [Concomitant]
     Active Substance: GABAPENTIN
  23. VITAMIN D3 [Concomitant]
     Active Substance: CHOLECALCIFEROL
  24. ASPIRIN [Concomitant]
     Active Substance: ASPIRIN
  25. ELIQUIS [Concomitant]
     Active Substance: APIXABAN
  26. ISOSORBIDE MONONITRATE [Concomitant]
     Active Substance: ISOSORBIDE MONONITRATE
  27. TIZANIDINE HYDROCHLORIDE [Concomitant]
     Active Substance: TIZANIDINE HYDROCHLORIDE
  28. LIDOCAINE [Concomitant]
     Active Substance: LIDOCAINE
  29. ATORVASTATIN CALCIUM [Concomitant]
     Active Substance: ATORVASTATIN CALCIUM
  30. CREON [Concomitant]
     Active Substance: PANCRELIPASE AMYLASE\PANCRELIPASE LIPASE\PANCRELIPASE PROTEASE
  31. CLONAZEPAM [Concomitant]
     Active Substance: CLONAZEPAM
  32. DEXLANSOPRAZOLE [Concomitant]
     Active Substance: DEXLANSOPRAZOLE
  33. MYCOPHENOLATE MOFETIL [Concomitant]
     Active Substance: MYCOPHENOLATE MOFETIL
  34. ONDANSETRON HYDROCHLORIDE [Concomitant]
     Active Substance: ONDANSETRON HYDROCHLORIDE
  35. DICYCLOMINE HYDROCHLORIDE [Concomitant]
     Active Substance: DICYCLOMINE HYDROCHLORIDE
  36. OSPHENA [Concomitant]
     Active Substance: OSPEMIFENE
  37. VITAMIN B [Concomitant]
     Active Substance: VITAMIN B
  38. DIPHENHYDRAMINE HYDROCHLORIDE [Concomitant]
     Active Substance: DIPHENHYDRAMINE HYDROCHLORIDE
  39. FOLINIC PLUS [Concomitant]
  40. FLONASE ALLERGY RELIEF [Concomitant]
     Active Substance: FLUTICASONE PROPIONATE
  41. BACLOFEN [Concomitant]
     Active Substance: BACLOFEN
  42. ACETAMINOPHEN\HYDROCODONE [Concomitant]
     Active Substance: ACETAMINOPHEN\HYDROCODONE
  43. PROLIA [Concomitant]
     Active Substance: DENOSUMAB
  44. ASTAXANTHIN [Concomitant]
     Active Substance: ASTAXANTHIN
  45. HYDROCORTISONE [Concomitant]
     Active Substance: HYDROCORTISONE

REACTIONS (7)
  - COVID-19 [Unknown]
  - Poor venous access [Unknown]
  - Respiratory syncytial virus infection [Unknown]
  - Nasopharyngitis [Not Recovered/Not Resolved]
  - Fungal infection [Unknown]
  - Sinusitis [Unknown]
  - Upper respiratory tract infection [Unknown]

NARRATIVE: CASE EVENT DATE: 20220101
